FAERS Safety Report 5892231-9 (Version None)
Quarter: 2008Q3

REPORT INFORMATION
  Report Type: 
  Country: None (occurrence: None)
  Receive Date: 20080919
  Receipt Date: 20080903
  Transmission Date: 20090109
  Serious: Yes (Hospitalization)
  Sender: FDA-Public Use
  Company Number: ISPH-2008-0185

PATIENT
  Age: 69 Year
  Sex: Female
  Weight: 59.8748 kg

DRUGS (2)
  1. AZASITE [Suspect]
     Indication: BLEPHARITIS
     Dosage: 1 GTT QD OPTHALMIC
     Route: 047
     Dates: start: 20080821, end: 20080830
  2. VITAMINS [Concomitant]

REACTIONS (7)
  - BLOOD PRESSURE INCREASED [None]
  - DIZZINESS [None]
  - HEADACHE [None]
  - LOSS OF CONSCIOUSNESS [None]
  - TOOTHACHE [None]
  - VISION BLURRED [None]
  - VOMITING [None]
